FAERS Safety Report 5078412-5 (Version None)
Quarter: 2006Q3

REPORT INFORMATION
  Report Type: 
  Country: None (occurrence: None)
  Receive Date: 20060811
  Receipt Date: 20060802
  Transmission Date: 20061208
  Serious: Yes (Other)
  Sender: FDA-Public Use
  Company Number: US-JNJFOC-20060801098

PATIENT
  Sex: Female
  Weight: 104.33 kg

DRUGS (2)
  1. ORTHO TRI-CYCLEN LO [Suspect]
     Indication: MENSTRUATION IRREGULAR
     Route: 048
  2. DEPO SHOT [Concomitant]
     Indication: HORMONE REPLACEMENT THERAPY
     Route: 050

REACTIONS (2)
  - ENDOMETRIAL ABLATION [None]
  - WEIGHT DECREASED [None]
